FAERS Safety Report 11744115 (Version 1)
Quarter: 2015Q4

REPORT INFORMATION
  Report Type: Report from Study
  Country: BR (occurrence: BR)
  Receive Date: 20151116
  Receipt Date: 20151116
  Transmission Date: 20160304
  Serious: Yes (Hospitalization, Other)
  Sender: FDA-Public Use
  Company Number: BR-BAYER-2015-462510

PATIENT
  Age: 41 Year
  Sex: Female

DRUGS (2)
  1. BETAFERON [Suspect]
     Active Substance: INTERFERON BETA-1B
     Indication: MULTIPLE SCLEROSIS
     Dosage: 1 ML, QOD
     Route: 058
     Dates: start: 200111
  2. RIVOTRIL [Concomitant]
     Active Substance: CLONAZEPAM
     Indication: ANXIOLYTIC THERAPY
     Dosage: UNK
     Route: 048

REACTIONS (12)
  - Nephrolithiasis [Recovered/Resolved]
  - Balance disorder [Not Recovered/Not Resolved]
  - Muscle atrophy [Not Recovered/Not Resolved]
  - Insomnia [Recovering/Resolving]
  - Diplegia [Not Recovered/Not Resolved]
  - Erysipelas [Recovered/Resolved]
  - Gastritis bacterial [Not Recovered/Not Resolved]
  - Dizziness [Not Recovered/Not Resolved]
  - Urinary tract infection [Recovered/Resolved]
  - Fatigue [Not Recovered/Not Resolved]
  - Headache [Not Recovered/Not Resolved]
  - Fall [None]

NARRATIVE: CASE EVENT DATE: 200111
